FAERS Safety Report 9308004 (Version 1)
Quarter: 2013Q2

REPORT INFORMATION
  Report Type: Spontaneous
  Country: GB (occurrence: GB)
  Receive Date: 20130524
  Receipt Date: 20130524
  Transmission Date: 20140414
  Serious: Yes (Disabling)
  Sender: FDA-Public Use
  Company Number: GB-ROCHE-1227666

PATIENT
  Age: 66 Year
  Sex: Female
  Weight: 78.82 kg

DRUGS (9)
  1. HERCEPTIN [Suspect]
     Indication: BREAST CANCER METASTATIC
     Route: 042
     Dates: start: 20120919, end: 20121220
  2. ASCORBIC ACID [Concomitant]
  3. BENDROFLUAZIDE [Concomitant]
  4. CO-CODAMOL [Concomitant]
  5. FERROUS SULPHATE [Concomitant]
  6. IRBESARTAN [Concomitant]
  7. LANSOPRAZOLE [Concomitant]
  8. LETROZOLE [Concomitant]
  9. ZOLEDRONATE [Concomitant]

REACTIONS (5)
  - Dyspnoea [Unknown]
  - Condition aggravated [Unknown]
  - Cough [Unknown]
  - Interstitial lung disease [Not Recovered/Not Resolved]
  - Pulmonary fibrosis [Unknown]
